FAERS Safety Report 8619321-1 (Version None)
Quarter: 2012Q3

REPORT INFORMATION
  Report Type: 
  Country: None (occurrence: None)
  Receive Date: 20120816
  Receipt Date: 20120816
  Transmission Date: 20120928
  Serious: Yes (Hospitalization)
  Sender: FDA-Public Use
  Company Number: None

PATIENT
  Age: 82 Year
  Sex: Male
  Weight: 92.3 kg

DRUGS (2)
  1. WARFARIN SODIUM [Suspect]
     Indication: ATRIAL FIBRILLATION
     Dosage: 5 MG EVERY DAY PO
     Route: 048
     Dates: start: 20120803, end: 20120810
  2. ENOXAPARIN [Suspect]
     Dosage: 80 MG BID SQ
     Route: 058
     Dates: start: 20120803, end: 20120810

REACTIONS (1)
  - HAEMATOMA [None]
